FAERS Safety Report 9553872 (Version 1)
Quarter: 2013Q3

REPORT INFORMATION
  Report Type: Spontaneous
  Country: US (occurrence: None)
  Receive Date: 20130815
  Receipt Date: 20130815
  Transmission Date: 20140515
  Serious: Yes (Other)
  Sender: FDA-Public Use
  Company Number: ADR-2012-01485

PATIENT
  Sex: Male

DRUGS (4)
  1. BACLOFEN INTRATHECAL(BACLOFEN INJECTION) [Suspect]
     Indication: PAIN
  2. BACLOFEN INTRATHECAL(BACLOFEN INJECTION) [Suspect]
     Indication: POST LAMINECTOMY SYNDROME
  3. DILAUDID [Concomitant]
  4. CLONIDINE [Concomitant]

REACTIONS (1)
  - Therapeutic response decreased [None]
